FAERS Safety Report 6253403-7 (Version None)
Quarter: 2009Q2

REPORT INFORMATION
  Report Type: 
  Country: None (occurrence: None)
  Receive Date: 20090626
  Receipt Date: 20080630
  Transmission Date: 20091009
  Serious: Yes (Hospitalization)
  Sender: FDA-Public Use
  Company Number: 573094

PATIENT
  Age: 56 Year
  Sex: Female

DRUGS (2)
  1. XELODA [Suspect]
     Indication: COLON CANCER
  2. ONDANSETRON (ONDANSETRON HYDROCHLORIDE) [Concomitant]

REACTIONS (3)
  - DRUG HYPERSENSITIVITY [None]
  - MYOCARDIAL INFARCTION [None]
  - VASOSPASM [None]
